FAERS Safety Report 4641740-9 (Version None)
Quarter: 2005Q2

REPORT INFORMATION
  Report Type: 
  Country: None (occurrence: None)
  Receive Date: 20050420
  Receipt Date: 20050309
  Transmission Date: 20051028
  Serious: Yes (Death, Hospitalization)
  Sender: FDA-Public Use
  Company Number: Q05-005

PATIENT
  Sex: Male
  Weight: 64.4108 kg

DRUGS (8)
  1. SAMARIUM SM 153 (QUADRAMET) [Suspect]
     Indication: METASTASES TO BONE
     Dosage: 60MCI (1MCI/KGA) IV
     Route: 042
     Dates: start: 20041209
  2. AZULFIDIEN [Concomitant]
  3. FLAGYL [Concomitant]
  4. HYDROCODONE BITARTRATE [Concomitant]
  5. NEOADJUVANT HORMONAL THEARPY [Concomitant]
  6. MITOXANTRONE [Concomitant]
  7. ZOMEDA [Concomitant]
  8. CENTIGRAY [Concomitant]

REACTIONS (12)
  - ABDOMINAL PAIN [None]
  - ASTHENIA [None]
  - DEHYDRATION [None]
  - DYSPNOEA [None]
  - FATIGUE [None]
  - HAEMATEMESIS [None]
  - HEPATOMEGALY [None]
  - OEDEMA PERIPHERAL [None]
  - PAIN [None]
  - PERFORMANCE STATUS DECREASED [None]
  - PITTING OEDEMA [None]
  - VOMITING [None]
